FAERS Safety Report 18519427 (Version 2)
Quarter: 2021Q1

REPORT INFORMATION
  Report Type: Spontaneous
  Country: US (occurrence: US)
  Receive Date: 20201119
  Receipt Date: 20210114
  Transmission Date: 20210419
  Serious: No
  Sender: FDA-Public Use
  Company Number: US-CELGENEUS-USA-20201102595

PATIENT
  Age: 71 Year
  Sex: Female

DRUGS (3)
  1. DALFAMPRIDINE. [Concomitant]
     Active Substance: DALFAMPRIDINE
     Indication: MULTIPLE SCLEROSIS
     Route: 065
     Dates: start: 202006, end: 20201111
  2. ZEPOSIA [Suspect]
     Active Substance: OZANIMOD HYDROCHLORIDE
     Dosage: 0.92 MILLIGRAM
     Route: 048
     Dates: start: 20201024, end: 20201111
  3. ZEPOSIA [Suspect]
     Active Substance: OZANIMOD HYDROCHLORIDE
     Indication: MULTIPLE SCLEROSIS
     Dosage: 0.92 MILLIGRAM
     Route: 048
     Dates: start: 20201017

REACTIONS (3)
  - Mental disorder [Unknown]
  - Memory impairment [Unknown]
  - Balance disorder [Unknown]

NARRATIVE: CASE EVENT DATE: 20201017
